FAERS Safety Report 6376954-3 (Version None)
Quarter: 2009Q3

REPORT INFORMATION
  Report Type: 
  Country: None (occurrence: None)
  Receive Date: 20090921
  Receipt Date: 20090914
  Transmission Date: 20100115
  Serious: Yes (Hospitalization)
  Sender: FDA-Public Use
  Company Number: 2009SP025671

PATIENT
  Age: 51 Year
  Sex: Male

DRUGS (7)
  1. TEMODAL [Suspect]
     Indication: GLIOBLASTOMA
     Dosage: ; PO
     Route: 048
     Dates: start: 20090706, end: 20090727
  2. MEDROL [Suspect]
     Indication: GLIOBLASTOMA
     Dosage: 16 MG; QD; PO
     Route: 048
     Dates: start: 20090706
  3. ALFUZOSIN HCL [Suspect]
     Indication: DRUG USE FOR UNKNOWN INDICATION
     Dosage: 1 DF; QM; PO
     Route: 048
     Dates: end: 20090727
  4. NEURONTIN [Suspect]
     Indication: DRUG USE FOR UNKNOWN INDICATION
     Dates: end: 20090827
  5. MOTILIUM [Concomitant]
  6. FORLAX [Concomitant]
  7. DIFFU-K [Concomitant]

REACTIONS (2)
  - CHOLESTASIS [None]
  - CYTOLYTIC HEPATITIS [None]
